FAERS Safety Report 4294912-X (Version None)
Quarter: 2004Q1

REPORT INFORMATION
  Report Type: 
  Country: None (occurrence: None)
  Receive Date: 20040216
  Receipt Date: 20010401
  Transmission Date: 20041129
  Serious: No
  Sender: FDA-Public Use
  Company Number: US-GLAXOSMITHKLINE-A0397549A

PATIENT
  Age: 30 Year
  Sex: Female
  Weight: 52.3 kg

DRUGS (2)
  1. LAMICTAL [Suspect]
     Indication: BIPOLAR DISORDER
     Dosage: 25MG PER DAY
     Route: 048
     Dates: start: 20030129
  2. NO CONCURRENT MEDICATION [Concomitant]

REACTIONS (2)
  - PYREXIA [None]
  - VIRAL INFECTION [None]
